FAERS Safety Report 8914963 (Version 1)
Quarter: 2012Q4

REPORT INFORMATION
  Report Type: 
  Country: SE (occurrence: SE)
  Receive Date: 20121119
  Receipt Date: 20121119
  Transmission Date: 20130627
  Serious: Yes (Hospitalization)
  Sender: FDA-Public Use
  Company Number: SE-TEVA-369508ISR

PATIENT
  Age: 57 Year
  Sex: Female

DRUGS (11)
  1. FLUOROURACIL [Suspect]
     Route: 051
  2. TAZOCIN [Suspect]
     Route: 051
  3. DUROGESIC [Concomitant]
     Route: 062
  4. ATACAND PLUS [Concomitant]
     Route: 048
  5. SPASMOFEN [Concomitant]
     Route: 054
  6. PANODIL [Concomitant]
     Route: 048
  7. LAXOBERAL [Concomitant]
     Route: 048
  8. MYCOSTATIN [Concomitant]
  9. EMGESAN [Concomitant]
     Route: 048
  10. LOPERAMID MYLAN [Concomitant]
     Route: 048
  11. OPIUM TINCTURE [Concomitant]

REACTIONS (4)
  - Colitis [Unknown]
  - Urticaria [Unknown]
  - Lip swelling [Unknown]
  - Supraventricular tachycardia [Unknown]
